FAERS Safety Report 13134903 (Version 2)
Quarter: 2017Q1

REPORT INFORMATION
  Report Type: Spontaneous
  Country: PT (occurrence: PT)
  Receive Date: 20170120
  Receipt Date: 20170209
  Transmission Date: 20170428
  Serious: Yes (Hospitalization)
  Sender: FDA-Public Use
  Company Number: PT-SA-2017SA007778

PATIENT
  Age: 80 Year
  Sex: Male

DRUGS (2)
  1. CAPRELSA [Suspect]
     Active Substance: VANDETANIB
     Route: 048
  2. CAPRELSA [Suspect]
     Active Substance: VANDETANIB
     Route: 048

REACTIONS (3)
  - Diarrhoea [Unknown]
  - Dehydration [Unknown]
  - Renal impairment [Recovering/Resolving]
